FAERS Safety Report 21923884 (Version 2)
Quarter: 2023Q1

REPORT INFORMATION
  Report Type: Spontaneous
  Country: IL (occurrence: IL)
  Receive Date: 20230130
  Receipt Date: 20230203
  Transmission Date: 20230418
  Serious: Yes (Death)
  Sender: FDA-Public Use
  Company Number: IL-TEVAIL-2023-IL-2849162

PATIENT
  Age: 10 Year
  Sex: Male

DRUGS (1)
  1. DEXTROAMPHET SACCHARAT, AMPHET ASPARTATE, DEXTROAMPHET SULFATE AND AMP [Suspect]
     Active Substance: AMPHETAMINE ASPARTATE\AMPHETAMINE SULFATE\DEXTROAMPHETAMINE SACCHARATE\DEXTROAMPHETAMINE SULFATE
     Indication: Developmental delay
     Route: 065
     Dates: start: 2022

REACTIONS (2)
  - Death [Fatal]
  - Chest pain [Unknown]

NARRATIVE: CASE EVENT DATE: 20220101
